FAERS Safety Report 10870127 (Version 1)
Quarter: 2015Q1

REPORT INFORMATION
  Report Type: Report from Study
  Country: US (occurrence: US)
  Receive Date: 20150226
  Receipt Date: 20150226
  Transmission Date: 20150721
  Serious: No
  Sender: FDA-Public Use
  Company Number: US-AMGEN-USASL2015016848

PATIENT
  Age: 52 Year
  Sex: Female

DRUGS (2)
  1. ENBREL [Suspect]
     Active Substance: ETANERCEPT
     Indication: PSORIATIC ARTHROPATHY
  2. ENBREL [Suspect]
     Active Substance: ETANERCEPT
     Indication: PSORIASIS
     Dosage: 50 MG, QWK
     Route: 065
     Dates: start: 20030101

REACTIONS (7)
  - Psoriasis [Not Recovered/Not Resolved]
  - Headache [Recovered/Resolved]
  - Pruritus [Not Recovered/Not Resolved]
  - Paranasal sinus discomfort [Recovered/Resolved]
  - Sinusitis [Not Recovered/Not Resolved]
  - Ear pain [Recovered/Resolved]
  - Increased upper airway secretion [Recovered/Resolved]

NARRATIVE: CASE EVENT DATE: 201501
